FAERS Safety Report 9265786 (Version 3)
Quarter: 2013Q2

REPORT INFORMATION
  Report Type: Spontaneous
  Country: CA (occurrence: CA)
  Receive Date: 20130501
  Receipt Date: 20130610
  Transmission Date: 20140414
  Serious: Yes (Life-Threatening)
  Sender: FDA-Public Use
  Company Number: CA-GLAXOSMITHKLINE-A1021381A

PATIENT
  Age: 37 Year
  Sex: Female

DRUGS (3)
  1. VENTOLIN [Suspect]
     Indication: SEASONAL ALLERGY
     Route: 055
  2. FLOVENT [Concomitant]
  3. CONTRACEPTIVE [Concomitant]

REACTIONS (5)
  - Choking [Unknown]
  - Foreign body [Unknown]
  - Cough [Unknown]
  - Inhalation therapy [Unknown]
  - Product quality issue [Unknown]
